FAERS Safety Report 19062788 (Version 1)
Quarter: 2021Q1

REPORT INFORMATION
  Report Type: Spontaneous
  Country: US (occurrence: US)
  Receive Date: 20210326
  Receipt Date: 20210326
  Transmission Date: 20210420
  Serious: No
  Sender: FDA-Public Use
  Company Number: US-ASTRAZENECA-2021A094341

PATIENT
  Sex: Male
  Weight: 83.9 kg

DRUGS (5)
  1. NUCALA [Concomitant]
     Active Substance: MEPOLIZUMAB
     Indication: ASTHMA
  2. STEROID [Concomitant]
     Active Substance: UNSPECIFIED INGREDIENT
     Indication: ECZEMA
  3. PROAIR HFA [Concomitant]
     Active Substance: ALBUTEROL SULFATE
     Indication: ASTHMA
     Route: 065
  4. SYMBICORT [Suspect]
     Active Substance: BUDESONIDE\FORMOTEROL FUMARATE DIHYDRATE
     Indication: ASTHMA
     Dosage: 160 4.5MCG 2 PUFFS TWICE DAILY
     Route: 055
     Dates: start: 202009
  5. COVID VACCINE [Concomitant]
     Indication: COVID-19

REACTIONS (6)
  - Pruritus [Unknown]
  - Urticaria [Unknown]
  - Wheezing [Unknown]
  - Eczema [Unknown]
  - Haemorrhage [Unknown]
  - Drug ineffective [Unknown]
